FAERS Safety Report 9945302 (Version 1)
Quarter: 2014Q1

REPORT INFORMATION
  Report Type: Spontaneous
  Country: US (occurrence: US)
  Receive Date: 20140303
  Receipt Date: 20140303
  Transmission Date: 20141002
  Serious: Yes (Other)
  Sender: FDA-Public Use
  Company Number: US-AMGEN-USASP2013075178

PATIENT
  Age: 52 Year
  Sex: Female

DRUGS (1)
  1. ENBREL [Suspect]
     Indication: RHEUMATOID ARTHRITIS
     Dosage: UNK UNK, QWK
     Route: 065
     Dates: start: 20130809

REACTIONS (4)
  - Tooth abscess [Recovered/Resolved]
  - Accident [Recovered/Resolved]
  - Thermal burn [Recovered/Resolved]
  - Rheumatoid arthritis [Recovered/Resolved]
